FAERS Safety Report 4913487-2 (Version None)
Quarter: 2006Q1

REPORT INFORMATION
  Report Type: 
  Country: None (occurrence: None)
  Receive Date: 20060216
  Receipt Date: 20060209
  Transmission Date: 20060701
  Serious: Yes (Hospitalization)
  Sender: FDA-Public Use
  Company Number: NL-SANOFI-SYNTHELABO-F01200600376

PATIENT
  Sex: Male

DRUGS (6)
  1. OXALIPLATIN [Suspect]
     Indication: COLORECTAL CANCER
     Route: 041
  2. CAPECITABINE [Suspect]
     Dosage: 1000 MG/M2 TWICE DAILY DAYS 1-14, EVERY THREE WEEKS
     Route: 048
  3. METFORMIN [Concomitant]
  4. AMARYL [Concomitant]
  5. NAPROXEN [Concomitant]
  6. COLCHICINE [Concomitant]

REACTIONS (3)
  - DIABETES MELLITUS [None]
  - DIABETES MELLITUS INADEQUATE CONTROL [None]
  - GOUT [None]
